FAERS Safety Report 24067457 (Version 1)
Quarter: 2024Q3

REPORT INFORMATION
  Report Type: Spontaneous
  Country: US (occurrence: US)
  Receive Date: 20240709
  Receipt Date: 20240709
  Transmission Date: 20241017
  Serious: No
  Sender: BAUSCH AND LOMB
  Company Number: US-BAUSCHBL-2024BNL029518

PATIENT
  Age: 80 Year
  Sex: Female

DRUGS (4)
  1. LOTEMAX [Suspect]
     Active Substance: LOTEPREDNOL ETABONATE
     Indication: Dry eye
     Dosage: PATIENT BEGAN USING LOTEPREDNOL ETABONATE OPHTHALMIC SUSPENSION FOR COUPLE MONTHS AGO
     Route: 065
     Dates: start: 2024
  2. LOTEMAX [Suspect]
     Active Substance: LOTEPREDNOL ETABONATE
     Indication: Dry eye
  3. LOTEMAX [Suspect]
     Active Substance: LOTEPREDNOL ETABONATE
     Indication: Pruritus
  4. LOTEMAX [Suspect]
     Active Substance: LOTEPREDNOL ETABONATE
     Indication: Pruritus

REACTIONS (3)
  - Eye irritation [Unknown]
  - Product quality issue [Unknown]
  - Product use in unapproved indication [Unknown]
